FAERS Safety Report 16864315 (Version 3)
Quarter: 2025Q1

REPORT INFORMATION
  Report Type: Report from Study
  Country: US (occurrence: US)
  Receive Date: 20190927
  Receipt Date: 20250331
  Transmission Date: 20250409
  Serious: Yes (Hospitalization, Other)
  Sender: TAKEDA
  Company Number: US-SHIRE-US201931744

PATIENT
  Age: 46 Year
  Sex: Male

DRUGS (11)
  1. PARATHYROID HORMONE [Suspect]
     Active Substance: PARATHYROID HORMONE
     Indication: Hypoparathyroidism
     Dosage: 100 MICROGRAM, QD
     Dates: start: 20171211
  2. PARATHYROID HORMONE [Suspect]
     Active Substance: PARATHYROID HORMONE
     Indication: Hypocalcaemia
  3. PARATHYROID HORMONE [Suspect]
     Active Substance: PARATHYROID HORMONE
  4. Calcitriol;Calcium [Concomitant]
     Indication: Hypocalcaemia
  5. Calcitriol;Calcium [Concomitant]
     Indication: Hypoparathyroidism
  6. TUMS [Concomitant]
     Active Substance: CALCIUM CARBONATE
     Indication: Hypocalcaemia
  7. TUMS [Concomitant]
     Active Substance: CALCIUM CARBONATE
     Indication: Hypoparathyroidism
  8. HYDROCHLOROTHIAZIDE [Concomitant]
     Active Substance: HYDROCHLOROTHIAZIDE
     Indication: Hypocalcaemia
  9. HYDROCHLOROTHIAZIDE [Concomitant]
     Active Substance: HYDROCHLOROTHIAZIDE
     Indication: Hypothyroidism
  10. KCL [Concomitant]
     Active Substance: POTASSIUM CHLORIDE
     Indication: Hypocalcaemia
  11. KCL [Concomitant]
     Active Substance: POTASSIUM CHLORIDE
     Indication: Hypoparathyroidism

REACTIONS (3)
  - Blood calcium decreased [Not Recovered/Not Resolved]
  - Hypoparathyroidism [Unknown]
  - Hypocalcaemia [Unknown]

NARRATIVE: CASE EVENT DATE: 20190916
